FAERS Safety Report 7475530-9 (Version None)
Quarter: 2011Q2

REPORT INFORMATION
  Report Type: 
  Country: None (occurrence: None)
  Receive Date: 20110512
  Receipt Date: 20110511
  Transmission Date: 20111010
  Serious: Yes (Death, Other)
  Sender: FDA-Public Use
  Company Number: PHHY2011BR39478

PATIENT
  Sex: Female

DRUGS (2)
  1. GALVUS MET [Suspect]
     Dosage: 850MG METFORMIN AND 50MG VILDAGLIPTIN
  2. DIOVAN [Suspect]
     Dosage: 160 MG, UNK

REACTIONS (2)
  - FALL [None]
  - DEATH [None]
